FAERS Safety Report 8872496 (Version 1)
Quarter: 2012Q4

REPORT INFORMATION
  Report Type: Spontaneous
  Country: US (occurrence: None)
  Receive Date: 20121031
  Receipt Date: 20121031
  Transmission Date: 20130627
  Serious: No
  Sender: FDA-Public Use
  Company Number: None

PATIENT
  Age: 17 Year
  Sex: Female

DRUGS (2)
  1. COMPAZINE [Suspect]
     Indication: NAUSEA
     Dosage: 10 mg one time IM
     Route: 030
     Dates: start: 20120911, end: 20120911
  2. COMPAZINE [Suspect]
     Indication: VOMITING
     Dosage: 10 mg one time IM
     Route: 030
     Dates: start: 20120911, end: 20120911

REACTIONS (1)
  - No adverse event [None]
